FAERS Safety Report 12137161 (Version 2)
Quarter: 2016Q1

REPORT INFORMATION
  Report Type: Spontaneous
  Country: US (occurrence: US)
  Receive Date: 20160302
  Receipt Date: 20160325
  Transmission Date: 20160526
  Serious: No
  Sender: FDA-Public Use
  Company Number: US-PFIZER INC-2016132478

PATIENT
  Age: 50 Year
  Sex: Female
  Weight: 66 kg

DRUGS (3)
  1. PREMPRO [Suspect]
     Active Substance: ESTROGENS, CONJUGATED\MEDROXYPROGESTERONE ACETATE
     Dosage: 1 DF, UNK (0.625MG/2.5MG ONE TABLET A DAY BY MOUTH)
     Route: 048
     Dates: start: 20160226, end: 20160228
  2. PREMPRO [Suspect]
     Active Substance: ESTROGENS, CONJUGATED\MEDROXYPROGESTERONE ACETATE
     Indication: HOT FLUSH
     Dosage: 1 DF (0.625 MG/3.25 MG), 1X/DAY
     Route: 048
  3. LATUDA [Concomitant]
     Active Substance: LURASIDONE HYDROCHLORIDE
     Indication: MOOD ALTERED
     Dosage: 40 MG, 1X/DAY
     Route: 048

REACTIONS (7)
  - Cough [Unknown]
  - Hyperhidrosis [Unknown]
  - Drug ineffective [Unknown]
  - Dyspnoea [Not Recovered/Not Resolved]
  - Heart rate decreased [Unknown]
  - Insomnia [Unknown]
  - Frustration tolerance decreased [Not Recovered/Not Resolved]

NARRATIVE: CASE EVENT DATE: 20160226
